FAERS Safety Report 9928266 (Version 5)
Quarter: 2014Q3

REPORT INFORMATION
  Report Type: Report from Study
  Country: JP (occurrence: JP)
  Receive Date: 20140227
  Receipt Date: 20140904
  Transmission Date: 20150326
  Serious: Yes (Hospitalization, Disabling)
  Sender: FDA-Public Use
  Company Number: JP-PFIZER INC-2014051210

PATIENT
  Age: 27 Year
  Sex: Female
  Weight: 45.8 kg

DRUGS (10)
  1. TEPRENONE [Concomitant]
     Active Substance: TEPRENONE
     Dosage: 50 MG, 3X/DAY
     Route: 048
     Dates: start: 20130614, end: 20130718
  2. SALIPARA CODEINE [Concomitant]
     Dosage: 2 ML, AS NEEDED (SOLUTION)
     Route: 048
     Dates: start: 20130615, end: 201308
  3. ETIZOLAM [Concomitant]
     Active Substance: ETIZOLAM
     Dosage: 0.5 MG, 1X/DAY AFTER BREAKFAST
     Route: 048
     Dates: start: 20130620, end: 20130911
  4. DOMPERIN [Concomitant]
     Dosage: 10 MG, 1X/DAY
     Route: 048
     Dates: start: 20130624, end: 20131105
  5. XALKORI [Suspect]
     Active Substance: CRIZOTINIB
     Dosage: 200 MG, 2X/DAY
     Route: 048
     Dates: start: 20140701
  6. XALKORI [Suspect]
     Active Substance: CRIZOTINIB
     Indication: NON-SMALL CELL LUNG CANCER
     Dosage: 250 MG, 2X/DAY
     Route: 048
     Dates: start: 20130711, end: 20140630
  7. LOXOPROFEN SODIUM [Concomitant]
     Active Substance: LOXOPROFEN SODIUM
     Dosage: UNK
     Route: 048
     Dates: start: 20130604, end: 20130820
  8. MAG-LAX [Concomitant]
     Active Substance: MAGNESIUM HYDROXIDE\PARAFFIN
     Dosage: 250 MG, 3X/DAY
     Route: 048
     Dates: start: 20130615, end: 20130718
  9. FAMOTIDINE. [Concomitant]
     Active Substance: FAMOTIDINE
     Dosage: 20 MG, 1X/DAY AFTER SUPPER
     Route: 048
     Dates: start: 20130619, end: 20130722
  10. DOMPERIN [Concomitant]
     Dosage: 10 MG, 3X/DAY
     Route: 048

REACTIONS (2)
  - Deep vein thrombosis [Not Recovered/Not Resolved]
  - Pulmonary embolism [Not Recovered/Not Resolved]

NARRATIVE: CASE EVENT DATE: 20130712
